FAERS Safety Report 9276575 (Version 1)
Quarter: 2013Q2

REPORT INFORMATION
  Report Type: Spontaneous
  Country: SE (occurrence: SE)
  Receive Date: 20130507
  Receipt Date: 20130507
  Transmission Date: 20140414
  Serious: Yes (Hospitalization, Other)
  Sender: FDA-Public Use
  Company Number: PHHY2013SE042878

PATIENT
  Sex: Female

DRUGS (4)
  1. ACLASTA [Suspect]
     Dosage: UNK
     Route: 042
     Dates: start: 20130220
  2. ALVEDON FORTE [Concomitant]
     Dosage: UNK, (6/DAY)
  3. IPREN [Concomitant]
     Dosage: UNK, (2/DAY)
  4. DIKLOFENAK//DICLOFENAC [Concomitant]
     Dosage: UNK

REACTIONS (3)
  - Angina pectoris [Not Recovered/Not Resolved]
  - Chest pain [Unknown]
  - Musculoskeletal pain [Unknown]
